FAERS Safety Report 9374432 (Version 5)
Quarter: 2014Q3

REPORT INFORMATION
  Report Type: Report from Study
  Country: GB (occurrence: GB)
  Receive Date: 20130628
  Receipt Date: 20140715
  Transmission Date: 20150326
  Serious: Yes (Death, Life-Threatening, Hospitalization)
  Sender: FDA-Public Use
  Company Number: GB-ROCHE-1242145

PATIENT
  Age: 79 Year
  Sex: Male

DRUGS (10)
  1. DERMOLATE [Concomitant]
     Route: 065
     Dates: start: 20130114
  2. BISOPROLOL [Concomitant]
     Active Substance: BISOPROLOL
     Route: 065
     Dates: start: 20120717
  3. RANIBIZUMAB [Suspect]
     Active Substance: RANIBIZUMAB
     Indication: PRODUCT USED FOR UNKNOWN INDICATION
     Dosage: LAST DOSE OF RANIBIZUMAB RECEIVED BY THE PATIENT PRIOR TO THE EVENT WAS ON 17/JAN/2013.
     Route: 050
     Dates: start: 20110304
  4. SALBUTAMOL [Concomitant]
     Active Substance: ALBUTEROL
     Route: 065
     Dates: start: 20121120
  5. DOVONEX OINTMENT [Concomitant]
     Route: 065
     Dates: start: 20120327
  6. PSORALEN [Concomitant]
     Active Substance: PSORALEN
     Route: 065
     Dates: start: 20120617
  7. RANIBIZUMAB [Suspect]
     Active Substance: RANIBIZUMAB
     Route: 050
     Dates: start: 20130117, end: 20130117
  8. SALMETEROL [Concomitant]
     Active Substance: SALMETEROL
  9. WARFARIN [Concomitant]
     Active Substance: WARFARIN
     Route: 065
     Dates: start: 20120201
  10. AMOXYCILLIN [Concomitant]
     Active Substance: AMOXICILLIN
     Route: 065
     Dates: start: 20120717, end: 20120724

REACTIONS (4)
  - Mycosis fungoides [Fatal]
  - Peripheral swelling [Unknown]
  - Vision blurred [Unknown]
  - Eye haemorrhage [Unknown]

NARRATIVE: CASE EVENT DATE: 20120704
